FAERS Safety Report 10147353 (Version 1)
Quarter: 2014Q2

REPORT INFORMATION
  Report Type: Spontaneous
  Country: US (occurrence: US)
  Receive Date: 20140501
  Receipt Date: 20140501
  Transmission Date: 20141212
  Serious: No
  Sender: FDA-Public Use
  Company Number: US-BAYER-2014-064085

PATIENT
  Age: 35 Year
  Sex: Female
  Weight: 72.56 kg

DRUGS (3)
  1. MIDOL MENSTRUAL COMPLETE FORMULA [Suspect]
     Indication: DYSMENORRHOEA
     Dosage: 2 DF, PRN
     Route: 048
  2. MIDOL MENSTRUAL COMPLETE FORMULA [Suspect]
     Indication: DYSMENORRHOEA
     Dosage: 2 DF, PRN
     Route: 048
  3. MIDOL EXTENDED RELIEF CAPLET [Suspect]
     Indication: DYSMENORRHOEA
     Dosage: 2 DF, PRN
     Route: 048

REACTIONS (2)
  - Drug ineffective [None]
  - Extra dose administered [None]
